FAERS Safety Report 24265485 (Version 6)
Quarter: 2025Q3

REPORT INFORMATION
  Report Type: Report from Study
  Country: US (occurrence: US)
  Receive Date: 20240829
  Receipt Date: 20250930
  Transmission Date: 20251021
  Serious: Yes (Other)
  Sender: SUNOVION
  Company Number: US-SUMITOMO PHARMA SWITZERLAND GMBH-2024SPA000190

PATIENT
  Age: 69 Year
  Sex: Male

DRUGS (3)
  1. ORGOVYX [Suspect]
     Active Substance: RELUGOLIX
     Indication: Prostate cancer
     Route: 048
  2. ORGOVYX [Suspect]
     Active Substance: RELUGOLIX
     Dosage: 120 MG, QD
     Route: 048
     Dates: start: 20231220
  3. NUBEQA [Suspect]
     Active Substance: DAROLUTAMIDE
     Indication: Prostate cancer
     Dosage: 300 MG, BID
     Route: 048
     Dates: start: 20241018

REACTIONS (24)
  - Pericardial effusion [Unknown]
  - Pseudostroke [Unknown]
  - Blood testosterone decreased [Unknown]
  - Hypotension [Recovered/Resolved]
  - Feeling abnormal [Unknown]
  - COVID-19 [Unknown]
  - Muscle spasms [Unknown]
  - Malaise [Unknown]
  - Chest discomfort [Unknown]
  - Chest pain [Unknown]
  - Blood potassium increased [Unknown]
  - Blood creatinine increased [Unknown]
  - Blood pressure abnormal [Unknown]
  - Dyspnoea exertional [Unknown]
  - Drug hypersensitivity [Unknown]
  - Prostatic specific antigen increased [Unknown]
  - Paraesthesia [Unknown]
  - Muscle fatigue [Unknown]
  - Nausea [Unknown]
  - Headache [Unknown]
  - Arthralgia [Unknown]
  - Fatigue [Not Recovered/Not Resolved]
  - Diarrhoea [Unknown]
  - Hot flush [Not Recovered/Not Resolved]

NARRATIVE: CASE EVENT DATE: 20241201
